FAERS Safety Report 5767170-4 (Version None)
Quarter: 2008Q2

REPORT INFORMATION
  Report Type: 
  Country: None (occurrence: None)
  Receive Date: 20080612
  Receipt Date: 20080604
  Transmission Date: 20081010
  Serious: Yes (Other)
  Sender: FDA-Public Use
  Company Number: GB-ALLERGAN-0806701US

PATIENT
  Sex: Female
  Weight: 63 kg

DRUGS (2)
  1. BOTOX [Suspect]
     Indication: HYPERTONIC BLADDER
     Dosage: 200 UNITS, SINGLE
     Route: 030
     Dates: start: 20070720, end: 20070720
  2. BLINDED BOTULINUM TOXIN TYPE A - GENERAL [Suspect]
     Indication: HYPERTONIC BLADDER
     Dosage: 200 UNITS, SINGLE
     Route: 030
     Dates: start: 20070720, end: 20070720

REACTIONS (3)
  - CYSTITIS INTERSTITIAL [None]
  - DRUG INEFFECTIVE [None]
  - HAEMORRHAGE URINARY TRACT [None]
